FAERS Safety Report 11083799 (Version 3)
Quarter: 2015Q3

REPORT INFORMATION
  Report Type: Spontaneous
  Country: US (occurrence: US)
  Receive Date: 20150501
  Receipt Date: 20150706
  Transmission Date: 20151125
  Serious: No
  Sender: FDA-Public Use
  Company Number: US-GLAXOSMITHKLINE-US2015GSK059422

PATIENT
  Sex: Male
  Weight: 136.5 kg

DRUGS (15)
  1. SULFAMETHOXAZOLE [Concomitant]
     Active Substance: SULFAMETHOXAZOLE
  2. CLARITIN [Concomitant]
     Active Substance: LORATADINE
  3. HYDROCHLOROTHIAZIDE. [Concomitant]
     Active Substance: HYDROCHLOROTHIAZIDE
  4. LISINOPRIL. [Concomitant]
     Active Substance: LISINOPRIL
  5. BENADRYL [Concomitant]
     Active Substance: DIPHENHYDRAMINE HYDROCHLORIDE
  6. SUTENT [Concomitant]
     Active Substance: SUNITINIB MALATE
  7. TRIAMCINOLONE ACETONIDE. [Concomitant]
     Active Substance: TRIAMCINOLONE ACETONIDE
  8. AMOX TR-POTASSIUM CLAVULANATE [Concomitant]
  9. OXYCODONE [Concomitant]
     Active Substance: OXYCODONE
  10. CEPHALEXIN. [Concomitant]
     Active Substance: CEPHALEXIN
  11. VOTRIENT [Suspect]
     Active Substance: PAZOPANIB HYDROCHLORIDE
     Indication: MALIGNANT CONNECTIVE TISSUE NEOPLASM
     Dosage: 800 MG, QD
     Route: 048
     Dates: start: 20150331, end: 20150518
  12. VOTRIENT [Suspect]
     Active Substance: PAZOPANIB HYDROCHLORIDE
     Indication: RENAL CANCER
  13. ASPIRIN + CAFFEINE + SALICYLAMIDE [Concomitant]
  14. VOTRIENT [Suspect]
     Active Substance: PAZOPANIB HYDROCHLORIDE
     Indication: SOFT TISSUE SARCOMA
     Dosage: 400 MG, QD
     Route: 048
     Dates: start: 20150603
  15. ZYVOX [Concomitant]
     Active Substance: LINEZOLID

REACTIONS (4)
  - Erectile dysfunction [Unknown]
  - Diarrhoea [Recovered/Resolved]
  - Blood pressure increased [Unknown]
  - Hepatic function abnormal [Unknown]
